FAERS Safety Report 6818871-8 (Version None)
Quarter: 2010Q3

REPORT INFORMATION
  Report Type: 
  Country: None (occurrence: None)
  Receive Date: 20100707
  Receipt Date: 20100625
  Transmission Date: 20110219
  Serious: Yes (Hospitalization)
  Sender: FDA-Public Use
  Company Number: US-BIOGENIDEC-2010BI017837

PATIENT
  Age: 50 Year
  Sex: Male
  Weight: 96 kg

DRUGS (9)
  1. TYSABRI [Suspect]
     Indication: MULTIPLE SCLEROSIS
     Route: 042
     Dates: start: 20100430
  2. BACLOFEN [Concomitant]
     Indication: MUSCLE SPASTICITY
  3. NEURONTIN [Concomitant]
     Indication: MULTIPLE SCLEROSIS
  4. HYDROCHLOROTHIAZIDE [Concomitant]
     Indication: HYPERTENSION
  5. EXFORGE [Concomitant]
     Indication: HYPERTENSION
  6. TRICOR [Concomitant]
     Indication: BLOOD CHOLESTEROL INCREASED
  7. SIMVASTATIN [Concomitant]
     Indication: BLOOD CHOLESTEROL INCREASED
  8. LEXAPRO [Concomitant]
     Indication: MULTIPLE SCLEROSIS
  9. PRAMIPEXOLE [Concomitant]
     Indication: RESTLESS LEGS SYNDROME

REACTIONS (8)
  - ABDOMINAL PAIN [None]
  - CHANGE OF BOWEL HABIT [None]
  - COLONIC POLYP [None]
  - CROHN'S DISEASE [None]
  - HERNIA [None]
  - HYPERTENSION [None]
  - PYREXIA [None]
  - WEIGHT DECREASED [None]
